FAERS Safety Report 14975136 (Version 7)
Quarter: 2019Q1

REPORT INFORMATION
  Report Type: Spontaneous
  Country: IT (occurrence: IT)
  Receive Date: 20180605
  Receipt Date: 20190228
  Transmission Date: 20190417
  Serious: Yes (Life-Threatening)
  Sender: FDA-Public Use
  Company Number: IT-MYLANLABS-2018M1028360

PATIENT
  Age: 57 Year
  Sex: Male
  Weight: 74 kg

DRUGS (4)
  1. BUPRENORPHINE. [Interacting]
     Active Substance: BUPRENORPHINE
     Indication: BACK PAIN
     Dosage: 1 DOSAGE FORM, CYCLE
     Route: 062
     Dates: start: 20180204, end: 20180213
  2. LINEZOLID. [Suspect]
     Active Substance: LINEZOLID
     Indication: INTERVERTEBRAL DISCITIS
     Dosage: (1.2 G, QD)/1200 MG, QD
     Route: 042
     Dates: start: 20180119, end: 20180213
  3. CUBICIN [Interacting]
     Active Substance: DAPTOMYCIN
     Indication: PRODUCT USED FOR UNKNOWN INDICATION
     Dosage: 350 MG, UNK
     Route: 065
     Dates: start: 20180119, end: 20180213
  4. CUBICIN [Interacting]
     Active Substance: DAPTOMYCIN
     Dosage: UNK
     Route: 065
     Dates: start: 20180119, end: 20180213

REACTIONS (3)
  - Drug interaction [Recovering/Resolving]
  - Metabolic acidosis [Recovering/Resolving]
  - Lactic acidosis [Not Recovered/Not Resolved]

NARRATIVE: CASE EVENT DATE: 20180213
